FAERS Safety Report 8443180 (Version 3)
Quarter: 2012Q4

REPORT INFORMATION
  Report Type: 
  Country: US (occurrence: US)
  Receive Date: 20120306
  Receipt Date: 20120912
  Transmission Date: 20130627
  Serious: Yes (Hospitalization)
  Sender: FDA-Public Use
  Company Number: US-BAYER-2012-021312

PATIENT
  Age: 23 Year
  Sex: Female
  Weight: 58.96 kg

DRUGS (4)
  1. YAZ [Suspect]
     Indication: ACNE
     Dosage: UNK
     Dates: start: 20080301, end: 20101031
  2. YAZ [Suspect]
     Indication: CONTRACEPTION
  3. MULTIVITAMIN [Concomitant]
     Indication: ROUTINE HEALTH MAINTENANCE
     Dosage: daily
  4. PRILOSEC [Concomitant]
     Dosage: UNK, Daily

REACTIONS (3)
  - Pulmonary embolism [None]
  - Injury [None]
  - Pain [None]
